FAERS Safety Report 5892143-0 (Version None)
Quarter: 2008Q3

REPORT INFORMATION
  Report Type: 
  Country: None (occurrence: None)
  Receive Date: 20080908
  Receipt Date: 20080521
  Transmission Date: 20090109
  Serious: No
  Sender: FDA-Public Use
  Company Number: 002#2#2008-00459

PATIENT
  Age: 80 Year
  Sex: Male
  Weight: 83.0083 kg

DRUGS (7)
  1. NEUPRO [Suspect]
     Indication: PARKINSON'S DISEASE
     Dosage: 2MG/24H, 1 IN 1 D, TRANSDERMAL : 4MG/24H, 1 IN 1 D, TRANSDERMAL : 6MG/24H, 1 IN 1 D, TRANSDERMAL
     Route: 062
     Dates: start: 20071101, end: 20070101
  2. NEUPRO [Suspect]
     Indication: PARKINSON'S DISEASE
     Dosage: 2MG/24H, 1 IN 1 D, TRANSDERMAL : 4MG/24H, 1 IN 1 D, TRANSDERMAL : 6MG/24H, 1 IN 1 D, TRANSDERMAL
     Route: 062
     Dates: end: 20080501
  3. SINEMET [Concomitant]
  4. PARCOPA-TABLETS-DOSE-UNKNOWN [Concomitant]
  5. AMIODERONE [Concomitant]
  6. MIDODRINE [Concomitant]
  7. FOLIC ACID [Concomitant]

REACTIONS (3)
  - CONDITION AGGRAVATED [None]
  - HYPOTENSION [None]
  - ORTHOSTATIC HYPOTENSION [None]
